FAERS Safety Report 5778149-0 (Version None)
Quarter: 2008Q2

REPORT INFORMATION
  Report Type: 
  Country: None (occurrence: None)
  Receive Date: 20080617
  Receipt Date: 20080603
  Transmission Date: 20081010
  Serious: Yes (Hospitalization, Other)
  Sender: FDA-Public Use
  Company Number: A-NJ2008-20795

PATIENT
  Age: 57 Year
  Sex: Female
  Weight: 49.9 kg

DRUGS (11)
  1. BOSENTAN I.PAH_SPC TABLET 62.5 MG(BOSENTAN I.PAH_SPC TABLET 62.5 MG) [Suspect]
     Indication: PULMONARY HYPERTENSION
     Dosage: 62.5 MG, BID, ORAL
     Route: 048
     Dates: start: 20080523, end: 20080601
  2. COUMADIN [Suspect]
     Indication: CARDIAC VALVE PROSTHESIS USER
     Dosage: UNK, UNK, ORAL
     Route: 048
     Dates: start: 20070802, end: 20080602
  3. ASA (ACETYLSALICYCLIC ACID) [Concomitant]
  4. NEXIUM (ESOMEPRAZOLE SODIUM) [Concomitant]
  5. TRIAZOLAM [Concomitant]
  6. FERROUS SULFATE TAB [Concomitant]
  7. REQUIP [Concomitant]
  8. SPIRONOLACTONE [Concomitant]
  9. LEVOTHYROXINE SODIUM [Concomitant]
  10. CARVEDILOL [Concomitant]
  11. FUROSEMIDE [Concomitant]

REACTIONS (7)
  - DIZZINESS [None]
  - FATIGUE [None]
  - HAEMATOCRIT DECREASED [None]
  - HAEMOGLOBIN DECREASED [None]
  - ILLOGICAL THINKING [None]
  - MUSCLE SPASMS [None]
  - PALPITATIONS [None]
